FAERS Safety Report 16868082 (Version 1)
Quarter: 2019Q3

REPORT INFORMATION
  Report Type: Spontaneous
  Country: DE (occurrence: DE)
  Receive Date: 20190930
  Receipt Date: 20190930
  Transmission Date: 20191005
  Serious: Yes (Other)
  Sender: FDA-Public Use
  Company Number: PHHY2019DE225327

PATIENT
  Age: 7 Year
  Sex: Female

DRUGS (1)
  1. OMNITROPE [Suspect]
     Active Substance: SOMATROPIN
     Indication: GROWTH HORMONE DEFICIENCY
     Dosage: 0.7 MG, UNK
     Route: 065
     Dates: start: 2018

REACTIONS (4)
  - Melanocytic naevus [Not Recovered/Not Resolved]
  - Hair follicle tumour benign [Not Recovered/Not Resolved]
  - Injection site pain [Not Recovered/Not Resolved]
  - Hypertrichosis [Not Recovered/Not Resolved]
